FAERS Safety Report 8988591 (Version 3)
Quarter: 2013Q1

REPORT INFORMATION
  Report Type: Spontaneous
  Country: US (occurrence: None)
  Receive Date: 20121218
  Receipt Date: 20130318
  Transmission Date: 20140127
  Serious: Yes (Other)
  Sender: FDA-Public Use
  Company Number: AUR-APL-2012-05293

PATIENT
  Age: 60 Year
  Sex: Female

DRUGS (6)
  1. SERTRALINE HYDROCHLORIDE [Suspect]
     Indication: DEPRESSION
     Dosage: 200 MG (100 MG, 2 IN 1 D), ORAL
     Dates: start: 20121127
  2. BETAXOLOL (BETAXOLOL) [Concomitant]
  3. FUROSEMIDE (FUROSEMIDE) [Concomitant]
  4. GABAPENTIN (GABAPENTIN) [Concomitant]
  5. METHYLPHENIDATE (METHYLPHENIDATE) [Concomitant]
  6. METHYLPHENIDATE ER (METHYLPHENIDATE HYDROCHLORIDE) [Concomitant]

REACTIONS (2)
  - Suicidal ideation [None]
  - Drug ineffective [None]
